FAERS Safety Report 12813624 (Version 1)
Quarter: 2016Q4

REPORT INFORMATION
  Report Type: Spontaneous
  Country: US (occurrence: US)
  Receive Date: 20161005
  Receipt Date: 20161005
  Transmission Date: 20170207
  Serious: Yes (Hospitalization, Other)
  Sender: FDA-Public Use
  Company Number: US-PFIZER INC-2016448894

PATIENT
  Age: 41 Year
  Sex: Male

DRUGS (21)
  1. RITUXAN [Suspect]
     Active Substance: RITUXIMAB
     Dosage: 375MG/M2 ON DAYS 2 (28JAN2015) AND 11
     Dates: start: 20150128
  2. LASIX [Concomitant]
     Active Substance: FUROSEMIDE
  3. ASPIRIN /00002701/ [Concomitant]
     Active Substance: ASPIRIN
     Indication: PROPHYLAXIS
     Dosage: 325 MG, 2X/DAY
  4. THIOGUANINE [Suspect]
     Active Substance: THIOGUANINE
     Indication: NON-HODGKIN^S LYMPHOMA
  5. CYCLOPHOSPHAMIDE. [Suspect]
     Active Substance: CYCLOPHOSPHAMIDE
     Indication: ACUTE LYMPHOCYTIC LEUKAEMIA
     Dosage: 1200 MG/M2, (DAY 1)
     Dates: start: 20140820
  6. RITUXAN [Suspect]
     Active Substance: RITUXIMAB
     Indication: NON-HODGKIN^S LYMPHOMA
     Dosage: 375 MG/M2, CYCLIC (DAY 8, 15)
     Dates: start: 20140827
  7. METHOTREXATE SODIUM. [Suspect]
     Active Substance: METHOTREXATE SODIUM
     Dosage: 100 MG/M2, (DAY 1)
     Route: 030
     Dates: start: 20150127
  8. METHOTREXATE SODIUM. [Suspect]
     Active Substance: METHOTREXATE SODIUM
     Dosage: 80 MG/M2, CYCLIC (DAYS 11, 21, 31, AND 41)
     Route: 030
  9. DAUNORUBICIN [Suspect]
     Active Substance: DAUNORUBICIN
     Indication: NON-HODGKIN^S LYMPHOMA
     Dosage: 45 MG/M2, 1X/DAY
     Dates: start: 20140820
  10. PEG/L-ASPARAGINASE [Suspect]
     Active Substance: PEGASPARGASE
     Indication: NON-HODGKIN^S LYMPHOMA
     Dosage: 2500UNITS/M2 (CAP AT 3750UNITS)
     Dates: start: 20140825
  11. MERCAPTOPURINE. [Suspect]
     Active Substance: MERCAPTOPURINE
     Indication: NON-HODGKIN^S LYMPHOMA
     Dosage: UNK
     Dates: start: 20150423
  12. SPIRONOLACTONE. [Concomitant]
     Active Substance: SPIRONOLACTONE
  13. PREDNISONE. [Suspect]
     Active Substance: PREDNISONE
     Indication: NON-HODGKIN^S LYMPHOMA
     Dosage: 60 MG/M2, 1X/DAY, (DAYS 1?21), (WITH SUBSEQUENT TAPER STARTING DAY 22)
     Dates: start: 20140820
  14. PENTAMIDINE [Concomitant]
     Active Substance: PENTAMIDINE
     Indication: PROPHYLAXIS
     Dosage: ONC MONTHLY INHALED
  15. RITUXAN [Suspect]
     Active Substance: RITUXIMAB
     Dosage: DAYS 1 AND 8
     Dates: start: 201504
  16. DEXAMETHASONE. [Suspect]
     Active Substance: DEXAMETHASONE
     Indication: NON-HODGKIN^S LYMPHOMA
  17. LOVENOX [Concomitant]
     Active Substance: ENOXAPARIN SODIUM
     Indication: PROPHYLAXIS
     Dosage: 40 MG, 2X/DAY
     Route: 058
  18. METHOTREXATE SODIUM. [Suspect]
     Active Substance: METHOTREXATE SODIUM
     Indication: NON-HODGKIN^S LYMPHOMA
     Dosage: 15 MG, UNK
     Dates: start: 20140821
  19. CYTARABINE. [Suspect]
     Active Substance: CYTARABINE
     Indication: NON-HODGKIN^S LYMPHOMA
     Dosage: UNK
  20. VINCRISTINE SULFATE. [Suspect]
     Active Substance: VINCRISTINE SULFATE
     Indication: NON-HODGKIN^S LYMPHOMA
     Dosage: 2 MG, CYCLIC (DAYS 1, 8, 15, 22)
     Route: 042
     Dates: start: 20140820
  21. NEUPOGEN [Suspect]
     Active Substance: FILGRASTIM
     Indication: NON-HODGKIN^S LYMPHOMA
     Dosage: UNK
     Dates: start: 20140823

REACTIONS (16)
  - Pulmonary oedema [Unknown]
  - Transaminases increased [Unknown]
  - Sinusitis [Unknown]
  - Hypoaesthesia [Unknown]
  - Nausea [Unknown]
  - Steatohepatitis [Unknown]
  - Mucosal inflammation [Unknown]
  - Cough [Recovering/Resolving]
  - Urinary retention [Unknown]
  - Burning sensation [Unknown]
  - Vomiting [Unknown]
  - Herpes zoster [Recovered/Resolved]
  - Diarrhoea [Recovering/Resolving]
  - Thrombocytopenia [Unknown]
  - Ascites [Unknown]
  - Ear pain [Unknown]

NARRATIVE: CASE EVENT DATE: 2015
